FAERS Safety Report 6923077-8 (Version None)
Quarter: 2010Q3

REPORT INFORMATION
  Report Type: 
  Country: None (occurrence: None)
  Receive Date: 20100813
  Receipt Date: 20100803
  Transmission Date: 20110219
  Serious: Yes (Death)
  Sender: FDA-Public Use
  Company Number: US-WATSON-2010-10557

PATIENT
  Age: 64 Year
  Sex: Male

DRUGS (1)
  1. TRIAMCINOLONE DIACETATE [Suspect]
     Indication: NECK PAIN
     Dosage: 2 ML, SINGLE
     Route: 014

REACTIONS (2)
  - CEREBROVASCULAR ACCIDENT [None]
  - COMA [None]
